FAERS Safety Report 25716280 (Version 2)
Quarter: 2025Q3

REPORT INFORMATION
  Report Type: Spontaneous
  Country: US (occurrence: US)
  Receive Date: 20250822
  Receipt Date: 20250929
  Transmission Date: 20251020
  Serious: No
  Sender: MYLAN
  Company Number: US-MYLANLABS-2025M1069316

PATIENT
  Age: 21 Year
  Sex: Female
  Weight: 77.11 kg

DRUGS (12)
  1. XULANE [Suspect]
     Active Substance: ETHINYL ESTRADIOL\NORELGESTROMIN
     Indication: Contraception
     Dosage: 150/35 MICROGRAM, QD (PER DAY, ONCE A WEEK)
     Dates: start: 20250811
  2. XULANE [Suspect]
     Active Substance: ETHINYL ESTRADIOL\NORELGESTROMIN
     Indication: Dysmenorrhoea
     Dosage: 150/35 MICROGRAM, QD (PER DAY, ONCE A WEEK)
     Route: 062
     Dates: start: 20250811
  3. XULANE [Suspect]
     Active Substance: ETHINYL ESTRADIOL\NORELGESTROMIN
     Indication: Heavy menstrual bleeding
     Dosage: 150/35 MICROGRAM, QD (PER DAY, ONCE A WEEK)
     Route: 062
     Dates: start: 20250811
  4. XULANE [Suspect]
     Active Substance: ETHINYL ESTRADIOL\NORELGESTROMIN
     Dosage: 150/35 MICROGRAM, QD (PER DAY, ONCE A WEEK)
     Dates: start: 20250811
  5. TYLENOL [Concomitant]
     Active Substance: ACETAMINOPHEN
  6. TYLENOL [Concomitant]
     Active Substance: ACETAMINOPHEN
     Route: 065
  7. TYLENOL [Concomitant]
     Active Substance: ACETAMINOPHEN
     Route: 065
  8. TYLENOL [Concomitant]
     Active Substance: ACETAMINOPHEN
  9. MOTRIN [Concomitant]
     Active Substance: IBUPROFEN
  10. MOTRIN [Concomitant]
     Active Substance: IBUPROFEN
     Route: 065
  11. MOTRIN [Concomitant]
     Active Substance: IBUPROFEN
     Route: 065
  12. MOTRIN [Concomitant]
     Active Substance: IBUPROFEN

REACTIONS (3)
  - Rash [Not Recovered/Not Resolved]
  - Wrong technique in product usage process [Unknown]
  - Product adhesion issue [Unknown]

NARRATIVE: CASE EVENT DATE: 20250801
